FAERS Safety Report 7997616-2 (Version None)
Quarter: 2011Q4

REPORT INFORMATION
  Report Type: 
  Country: None (occurrence: None)
  Receive Date: 20111221
  Receipt Date: 20111212
  Transmission Date: 20120403
  Serious: Yes (Hospitalization, Other)
  Sender: FDA-Public Use
  Company Number: JP-JNJFOC-20111010846

PATIENT
  Age: 92 Year
  Sex: Female
  Weight: 45 kg

DRUGS (13)
  1. GALANTAMINE HYDROBROMIDE [Suspect]
     Indication: DEMENTIA
     Route: 048
     Dates: start: 20110621
  2. GALANTAMINE HYDROBROMIDE [Suspect]
     Route: 048
  3. ARICEPT [Concomitant]
     Route: 048
     Dates: start: 20110315
  4. KENTAN [Concomitant]
     Route: 048
  5. ASPARA-CA [Concomitant]
     Route: 048
  6. GALANTAMINE HYDROBROMIDE [Suspect]
     Route: 048
     Dates: start: 20110517, end: 20110620
  7. GRAMALIL [Concomitant]
     Route: 048
     Dates: start: 20110412
  8. LANSOPRAZOLE [Concomitant]
     Route: 048
  9. GALANTAMINE HYDROBROMIDE [Suspect]
     Route: 048
  10. ARICEPT [Concomitant]
     Route: 048
     Dates: start: 20110301
  11. TPN [Concomitant]
     Route: 048
  12. RISPERDAL [Suspect]
     Indication: PRODUCT USED FOR UNKNOWN INDICATION
     Route: 048
  13. HERBAL NERVE TONIC LIQUID [Concomitant]
     Route: 065

REACTIONS (20)
  - VOMITING [None]
  - SALIVARY HYPERSECRETION [None]
  - PYREXIA [None]
  - LARGE INTESTINAL HAEMORRHAGE [None]
  - MUSCULAR WEAKNESS [None]
  - WEIGHT DECREASED [None]
  - THINKING ABNORMAL [None]
  - OVERDOSE [None]
  - CIRCULATORY COLLAPSE [None]
  - BRADYCARDIA [None]
  - LACRIMATION INCREASED [None]
  - OEDEMA PERIPHERAL [None]
  - MUSCLE SPASMS [None]
  - ALTERED STATE OF CONSCIOUSNESS [None]
  - CONVULSION [None]
  - HYPOPHAGIA [None]
  - HYPOTENSION [None]
  - GAIT DISTURBANCE [None]
  - BLOOD PRESSURE INCREASED [None]
  - NAUSEA [None]
